FAERS Safety Report 4733612-6 (Version None)
Quarter: 2005Q3

REPORT INFORMATION
  Report Type: 
  Country: None (occurrence: None)
  Receive Date: 20050729
  Receipt Date: 20050411
  Transmission Date: 20060218
  Serious: Yes (Hospitalization)
  Sender: FDA-Public Use
  Company Number: 2005055741

PATIENT
  Age: 43 Year
  Sex: Female

DRUGS (6)
  1. ZYRTEC [Suspect]
     Indication: RHINITIS ALLERGIC
     Dosage: 10 MG (1 IN 1 D), ORAL
     Route: 048
     Dates: start: 20050226, end: 20050306
  2. OLOPATADINE HYDROCHLORIDE [Suspect]
     Indication: RHINITIS ALLERGIC
     Dosage: ORAL
     Route: 048
     Dates: start: 20050307, end: 20050309
  3. OXATOMIDE [Suspect]
     Indication: RHINITIS ALLERGIC
     Dosage: ORAL
     Route: 048
     Dates: start: 20050309, end: 20050312
  4. CEFCAPENE PIVOXIL HYDROCHLORIDE (CEFCAPENE PIVOXIL HYDROHLORIDE) [Suspect]
     Indication: PROPHYLAXIS
     Dosage: ORAL
     Route: 048
     Dates: start: 20050311, end: 20050313
  5. OSELTAMIVIR (OSELTAMIVIR) [Suspect]
     Indication: INFLUENZA
     Dosage: ORAL
     Route: 048
     Dates: start: 20050312, end: 20050316
  6. CLARITHROMYCIN [Suspect]
     Indication: RHINITIS ALLERGIC
     Dosage: ORAL
     Route: 048
     Dates: start: 20050226, end: 20050302

REACTIONS (4)
  - ALANINE AMINOTRANSFERASE INCREASED [None]
  - ASPARTATE AMINOTRANSFERASE INCREASED [None]
  - INFLUENZA [None]
  - JAUNDICE [None]
